FAERS Safety Report 23508280 (Version 1)
Quarter: 2024Q1

REPORT INFORMATION
  Report Type: Spontaneous
  Country: US (occurrence: US)
  Receive Date: 20240209
  Receipt Date: 20240209
  Transmission Date: 20240409
  Serious: No
  Sender: FDA-Public Use
  Company Number: US-IBSA PHARMA INC.-2023IBS000085

PATIENT

DRUGS (1)
  1. TIROSINT-SOL [Suspect]
     Active Substance: LEVOTHYROXINE SODIUM
     Indication: Hypothyroidism
     Dosage: UNK MICROGRAM
     Route: 048
     Dates: start: 202212, end: 20230208

REACTIONS (2)
  - Gait inability [Recovered/Resolved]
  - Laboratory test abnormal [Recovered/Resolved]
